FAERS Safety Report 14674604 (Version 1)
Quarter: 2018Q1

REPORT INFORMATION
  Report Type: Spontaneous
  Country: US (occurrence: US)
  Receive Date: 20180323
  Receipt Date: 20180323
  Transmission Date: 20180509
  Serious: Yes (Other)
  Sender: FDA-Public Use
  Company Number: US-THE PROACTIV LLC-2044405

PATIENT
  Age: 14 Year
  Sex: Male

DRUGS (3)
  1. PROACTIV SOLUTION RENEWING CLEANSER [Suspect]
     Active Substance: BENZOYL PEROXIDE
     Indication: ACNE
     Route: 061
     Dates: start: 20180228, end: 20180303
  2. PROACTIV REPAIRING TREATMENT [Suspect]
     Active Substance: BENZOYL PEROXIDE
     Route: 061
     Dates: start: 20180228, end: 20180303
  3. PROACTIV REVITALIZING TONER (COSMETICS) [Suspect]
     Active Substance: COSMETICS
     Route: 061
     Dates: start: 20180228, end: 20180303

REACTIONS (7)
  - Erythema [Recovered/Resolved]
  - Lip swelling [Recovered/Resolved]
  - Rash vesicular [Recovered/Resolved]
  - Skin burning sensation [Recovered/Resolved]
  - Eyelid oedema [Recovered/Resolved]
  - Pharyngeal oedema [Recovered/Resolved]
  - Drug hypersensitivity [Not Recovered/Not Resolved]

NARRATIVE: CASE EVENT DATE: 20180228
